FAERS Safety Report 11913199 (Version 1)
Quarter: 2016Q1

REPORT INFORMATION
  Report Type: Report from Study
  Country: PE (occurrence: PE)
  Receive Date: 20160113
  Receipt Date: 20160113
  Transmission Date: 20160526
  Serious: Yes (Hospitalization, Other)
  Sender: FDA-Public Use
  Company Number: PE-GLAXOSMITHKLINE-PE2016GSK003344

PATIENT
  Age: 83 Year
  Sex: Male

DRUGS (1)
  1. DUTASTERIDE + TAMSULOSIN [Suspect]
     Active Substance: DUTASTERIDE\TAMSULOSIN HYDROCHLORIDE
     Indication: BENIGN PROSTATIC HYPERPLASIA
     Dosage: 0.5 MG, QD
     Route: 048
     Dates: start: 20151013

REACTIONS (4)
  - Prostatic operation [Unknown]
  - Contusion [Not Recovered/Not Resolved]
  - Haemorrhage [Unknown]
  - Leukaemia [Unknown]

NARRATIVE: CASE EVENT DATE: 201511
